FAERS Safety Report 24982412 (Version 1)
Quarter: 2025Q1

REPORT INFORMATION
  Report Type: Spontaneous
  Country: AU (occurrence: AU)
  Receive Date: 20250218
  Receipt Date: 20250218
  Transmission Date: 20250408
  Serious: Yes (Other)
  Sender: SANDOZ
  Company Number: AU-002147023-NVSC2025AU023164

PATIENT
  Age: 8 Decade
  Sex: Female

DRUGS (1)
  1. BRINZOLAMIDE [Suspect]
     Active Substance: BRINZOLAMIDE
     Indication: Open angle glaucoma
     Route: 065

REACTIONS (9)
  - Angle closure glaucoma [Recovered/Resolved]
  - Myopia [Recovered/Resolved]
  - Iris disorder [Recovered/Resolved]
  - Intraocular pressure increased [Recovered/Resolved]
  - Eye pain [Recovered/Resolved]
  - Vision blurred [Recovered/Resolved]
  - Visual acuity reduced [Recovered/Resolved]
  - Ciliary body disorder [Recovered/Resolved]
  - Effusion [Recovered/Resolved]
